FAERS Safety Report 16032107 (Version 3)
Quarter: 2019Q2

REPORT INFORMATION
  Report Type: Spontaneous
  Country: JP (occurrence: JP)
  Receive Date: 20190304
  Receipt Date: 20190419
  Transmission Date: 20190711
  Serious: Yes (Other)
  Sender: FDA-Public Use
  Company Number: PHJP2019JP000501

PATIENT
  Age: 77 Year
  Sex: Male

DRUGS (5)
  1. AZOPT [Suspect]
     Active Substance: BRINZOLAMIDE
     Dosage: UNK
     Route: 047
     Dates: start: 20181204, end: 20190105
  2. ALPHAGAN P [Concomitant]
     Active Substance: BRIMONIDINE TARTRATE
     Indication: GLAUCOMA
     Dosage: UNK
     Route: 065
     Dates: start: 20151210
  3. AZOPT [Suspect]
     Active Substance: BRINZOLAMIDE
     Indication: GLAUCOMA
     Dosage: UNK
     Route: 047
  4. XALACOM [Concomitant]
     Active Substance: LATANOPROST\TIMOLOL MALEATE
     Indication: GLAUCOMA
     Route: 065
     Dates: start: 20151210
  5. GLANATEC [Concomitant]
     Active Substance: RIPASUDIL HYDROCHLORIDE DIHYDRATE
     Indication: GLAUCOMA
     Dosage: UNK
     Route: 065
     Dates: start: 20151210

REACTIONS (5)
  - Eye pain [Unknown]
  - Foreign body sensation in eyes [Unknown]
  - Visual impairment [Recovered/Resolved]
  - Hyperaemia [Unknown]
  - Corneal epithelium defect [Recovered/Resolved]

NARRATIVE: CASE EVENT DATE: 20190105
